FAERS Safety Report 8969494 (Version 1)
Quarter: 2012Q4

REPORT INFORMATION
  Report Type: 
  Country: DE (occurrence: DE)
  Receive Date: 20121218
  Receipt Date: 20121218
  Transmission Date: 20130627
  Serious: Yes (Hospitalization)
  Sender: FDA-Public Use
  Company Number: DE-009507513-1212DEU004857

PATIENT
  Age: 42 Year
  Sex: Male

DRUGS (3)
  1. BOCEPREVIR [Suspect]
     Indication: HEPATITIS C
     Dosage: 2400 mg every days
     Route: 048
     Dates: start: 201201, end: 201207
  2. RIBAVIRIN [Concomitant]
     Indication: HEPATITIS C
     Dosage: UNK
     Route: 048
     Dates: start: 201201, end: 201207
  3. PEGINTERFERON ALFA-2B [Concomitant]
     Indication: HEPATITIS C
     Dosage: UNK
     Route: 058
     Dates: start: 201201, end: 201207

REACTIONS (1)
  - Pancreatitis [Not Recovered/Not Resolved]
